FAERS Safety Report 12856900 (Version 2)
Quarter: 2016Q4

REPORT INFORMATION
  Report Type: Spontaneous
  Country: US (occurrence: US)
  Receive Date: 20161018
  Receipt Date: 20161103
  Transmission Date: 20170207
  Serious: No
  Sender: FDA-Public Use
  Company Number: US-PFIZER INC-2016482799

PATIENT
  Age: 57 Year
  Sex: Male

DRUGS (7)
  1. BISOPROLOL FUMARATE. [Concomitant]
     Active Substance: BISOPROLOL FUMARATE
     Dosage: UNK
  2. XELJANZ [Suspect]
     Active Substance: TOFACITINIB CITRATE
     Indication: RHEUMATOID ARTHRITIS
     Dosage: 5 MG, 2X/DAY
     Route: 048
     Dates: start: 201501
  3. VIAGRA [Concomitant]
     Active Substance: SILDENAFIL CITRATE
  4. OTREXUP [Concomitant]
     Active Substance: METHOTREXATE
  5. CLONIDINE. [Concomitant]
     Active Substance: CLONIDINE
  6. OXYCODONE [Concomitant]
     Active Substance: OXYCODONE
  7. HYDROXYCHLOROQUINE [Concomitant]
     Active Substance: HYDROXYCHLOROQUINE

REACTIONS (1)
  - Pharyngitis streptococcal [Unknown]
